FAERS Safety Report 9530034 (Version 2)
Quarter: 2013Q3

REPORT INFORMATION
  Report Type: Spontaneous
  Country: SI (occurrence: SI)
  Receive Date: 20130917
  Receipt Date: 20130917
  Transmission Date: 20140515
  Serious: Yes (Death, Hospitalization, Other)
  Sender: FDA-Public Use
  Company Number: SI-BAYER-2013-093100

PATIENT
  Age: 58 Year
  Sex: Male

DRUGS (4)
  1. XARELTO [Suspect]
     Indication: PULMONARY EMBOLISM
     Dosage: DAILY DOSE 20 MG
     Dates: start: 201305, end: 20130713
  2. XARELTO [Interacting]
     Indication: THROMBOSIS PROPHYLAXIS
  3. ASPIRIN PROTECT 100 [Interacting]
  4. DILTIAZEM [Concomitant]

REACTIONS (7)
  - Gastrointestinal haemorrhage [None]
  - Renal failure chronic [None]
  - Shock haemorrhagic [None]
  - Brain injury [Fatal]
  - Ischaemic stroke [Fatal]
  - Cardiac arrest [Fatal]
  - Drug interaction [None]
